FAERS Safety Report 19643925 (Version 1)
Quarter: 2021Q3

REPORT INFORMATION
  Report Type: Spontaneous
  Country: US (occurrence: US)
  Receive Date: 20210730
  Receipt Date: 20210730
  Transmission Date: 20211014
  Serious: Yes (Other)
  Sender: FDA-Public Use
  Company Number: US-UNITED THERAPEUTICS-UNT-2021-014334

PATIENT
  Sex: Male

DRUGS (2)
  1. TYVASO [Suspect]
     Active Substance: TREPROSTINIL
     Indication: PULMONARY ARTERIAL HYPERTENSION
     Dosage: UNK
     Dates: start: 20200521
  2. TYVASO [Suspect]
     Active Substance: TREPROSTINIL
     Dosage: 90 ?G, QID

REACTIONS (9)
  - Nausea [Recovered/Resolved]
  - Dyspepsia [Unknown]
  - Off label use [Unknown]
  - Diarrhoea [Recovered/Resolved]
  - Viral infection [Unknown]
  - Haemoglobin decreased [Unknown]
  - Haematemesis [Recovered/Resolved]
  - Weight decreased [Unknown]
  - Oedema [Unknown]

NARRATIVE: CASE EVENT DATE: 2021
